FAERS Safety Report 5388986-2 (Version None)
Quarter: 2007Q3

REPORT INFORMATION
  Report Type: 
  Country: None (occurrence: None)
  Receive Date: 20070703
  Receipt Date: 20070329
  Transmission Date: 20080115
  Serious: No
  Sender: FDA-Public Use
  Company Number: 2007PV032731

PATIENT
  Sex: Male

DRUGS (6)
  1. SYMLIN [Suspect]
     Indication: DIABETES MELLITUS
     Dosage: SC
     Route: 058
     Dates: start: 20060101
  2. HUMALOG [Concomitant]
  3. HUMULIN N [Concomitant]
  4. BYETTA [Concomitant]
  5. INHALERS [Concomitant]
  6. OXYGEN [Concomitant]

REACTIONS (1)
  - PROTEIN URINE PRESENT [None]
